FAERS Safety Report 16226325 (Version 1)
Quarter: 2019Q2

REPORT INFORMATION
  Report Type: Spontaneous
  Country: FR (occurrence: FR)
  Receive Date: 20190423
  Receipt Date: 20190423
  Transmission Date: 20190711
  Serious: Yes (Hospitalization)
  Sender: FDA-Public Use
  Company Number: FR-AUROBINDO-AUR-APL-2019-021602

PATIENT

DRUGS (1)
  1. TRAMADOL. [Suspect]
     Active Substance: TRAMADOL
     Indication: SCIATICA
     Dosage: 1 DOSAGE FORM, DAILY,37,5/325 MG
     Route: 048
     Dates: start: 20180815, end: 20180815

REACTIONS (4)
  - Feeling drunk [Recovered/Resolved]
  - Derealisation [Recovered/Resolved]
  - Hypoaesthesia [Recovered/Resolved]
  - Depersonalisation/derealisation disorder [Recovered/Resolved]

NARRATIVE: CASE EVENT DATE: 20180815
